FAERS Safety Report 4889723-8 (Version None)
Quarter: 2006Q1

REPORT INFORMATION
  Report Type: 
  Country: None (occurrence: None)
  Receive Date: 20060120
  Receipt Date: 20060112
  Transmission Date: 20060701
  Serious: No
  Sender: FDA-Public Use
  Company Number: HQWYE326913JAN06

PATIENT
  Sex: 0

DRUGS (1)
  1. TYGACIL [Suspect]
     Indication: KLEBSIELLA INFECTION
     Dosage: 100 MG LOADING DOSE, THEN 50 MG TWICE DAILY, INTRAVENOUS
     Route: 042

REACTIONS (2)
  - DRUG INEFFECTIVE [None]
  - PATHOGEN RESISTANCE [None]
